FAERS Safety Report 4941668-0 (Version None)
Quarter: 2006Q1

REPORT INFORMATION
  Report Type: 
  Country: None (occurrence: None)
  Receive Date: 20060313
  Receipt Date: 20060228
  Transmission Date: 20060701
  Serious: Yes (Other)
  Sender: FDA-Public Use
  Company Number: US-ROCHE-438476

PATIENT
  Age: 59 Year
  Sex: Female

DRUGS (5)
  1. BONIVA [Suspect]
     Indication: DRUG USE FOR UNKNOWN INDICATION
     Route: 048
     Dates: start: 20050615, end: 20050615
  2. BONIVA [Suspect]
     Route: 048
     Dates: start: 20060203
  3. LEXAPRO [Concomitant]
     Route: 048
  4. ALLEGRA [Concomitant]
  5. NASONEX [Concomitant]

REACTIONS (4)
  - ABDOMINAL PAIN UPPER [None]
  - BREAST CANCER [None]
  - DIARRHOEA [None]
  - DRUG INTERACTION [None]
